FAERS Safety Report 17004284 (Version 1)
Quarter: 2019Q4

REPORT INFORMATION
  Report Type: Report from Study
  Country: US (occurrence: US)
  Receive Date: 20191107
  Receipt Date: 20191107
  Transmission Date: 20200122
  Serious: No
  Sender: FDA-Public Use
  Company Number: US-KYOWAKIRIN-2019BKK017404

PATIENT

DRUGS (1)
  1. GRANISETRON [Suspect]
     Active Substance: GRANISETRON
     Indication: PROPHYLAXIS OF NAUSEA AND VOMITING
     Dosage: APPLY A SINGLE PATCH 24 TO 48 HOURS BEFORE CHEMO, THEN REMOVE A MINIMUM OF 24 HOURS AFTER END OF CHE
     Route: 065

REACTIONS (1)
  - Drug ineffective [Unknown]
